FAERS Safety Report 18576790 (Version 1)
Quarter: 2020Q4

REPORT INFORMATION
  Report Type: Report from Study
  Country: CA (occurrence: CA)
  Receive Date: 20201203
  Receipt Date: 20201203
  Transmission Date: 20210114
  Serious: Yes (Hospitalization, Other)
  Sender: FDA-Public Use
  Company Number: CA-CHIESI-2020CHF05849

PATIENT
  Age: 78 Year
  Sex: Male
  Weight: 66.9 kg

DRUGS (1)
  1. DEFERIPRONE [Suspect]
     Active Substance: DEFERIPRONE
     Indication: BLOOD IRON ABNORMAL
     Dosage: 30 MILLIGRAM/KILOGRAM, TID
     Route: 048
     Dates: start: 20180607

REACTIONS (1)
  - Brain abscess [Recovering/Resolving]

NARRATIVE: CASE EVENT DATE: 20201104
